FAERS Safety Report 8131052-3 (Version None)
Quarter: 2012Q1

REPORT INFORMATION
  Report Type: 
  Country: None (occurrence: None)
  Receive Date: 20120209
  Receipt Date: 20120209
  Transmission Date: 20120608
  Serious: Yes (Hospitalization)
  Sender: FDA-Public Use
  Company Number: None

PATIENT
  Sex: Female
  Weight: 81.8 kg

DRUGS (2)
  1. TAXOL [Suspect]
     Dosage: 345 MG
  2. CARBOPLATIN [Suspect]
     Dosage: 540 MG

REACTIONS (3)
  - FEBRILE NEUTROPENIA [None]
  - ASTHENIA [None]
  - DIZZINESS [None]
